FAERS Safety Report 9285664 (Version 1)
Quarter: 2013Q2

REPORT INFORMATION
  Report Type: Spontaneous
  Country: US (occurrence: None)
  Receive Date: 20130507
  Receipt Date: 20130507
  Transmission Date: 20140414
  Serious: Yes (Hospitalization)
  Sender: FDA-Public Use
  Company Number: 2013P1005251

PATIENT
  Sex: Male

DRUGS (2)
  1. OXTELLAR XR [Suspect]
  2. VIMPAT [Suspect]

REACTIONS (1)
  - Ataxia [None]
